FAERS Safety Report 7209561-0 (Version None)
Quarter: 2011Q1

REPORT INFORMATION
  Report Type: 
  Country: None (occurrence: None)
  Receive Date: 20110104
  Receipt Date: 20101227
  Transmission Date: 20110831
  Serious: Yes (Hospitalization)
  Sender: FDA-Public Use
  Company Number: JP-GENZYME-THYM-1002233

PATIENT
  Sex: Male
  Weight: 73 kg

DRUGS (18)
  1. LEVOFLOXACIN [Concomitant]
     Indication: INFECTION PROPHYLAXIS
     Dosage: UNK
     Dates: start: 20100515, end: 20100521
  2. CYCLOSPORINE [Concomitant]
     Indication: APLASTIC ANAEMIA
     Dosage: UNK
     Dates: start: 20100524
  3. CARBAZOCHROME SODIUM SULFONATE [Concomitant]
     Indication: HAEMOSTASIS
     Dosage: UNK
     Dates: start: 20100716
  4. METHYLPREDNISOLONE SODIUM SUCCINATE [Concomitant]
     Indication: PREMEDICATION
     Dosage: UNK
     Dates: start: 20100517, end: 20100524
  5. VALACICLOVIR [Concomitant]
     Indication: INFECTION PROPHYLAXIS
     Dosage: UNK
     Dates: start: 20100515, end: 20100723
  6. HYDROXYZINE HCL [Concomitant]
     Indication: PREMEDICATION
     Dosage: UNK
     Dates: start: 20100517, end: 20100519
  7. BIFIDOBACTERIUM [Concomitant]
     Indication: ENTEROCOLITIS
     Dosage: UNK
     Dates: start: 20100518, end: 20100917
  8. TRANEXAMIC ACID [Concomitant]
     Indication: HAEMOSTASIS
     Dosage: UNK
     Dates: start: 20100716
  9. RANITIDINE HYDROCHLORIDE [Concomitant]
     Indication: PROPHYLAXIS AGAINST GASTROINTESTINAL ULCER
     Dosage: UNK
     Dates: start: 20100515
  10. PREDNISOLONE ACETATE [Concomitant]
     Indication: PREMEDICATION
     Dosage: UNK
     Dates: start: 20100525, end: 20100709
  11. SUCRALFATE [Concomitant]
     Indication: GASTRITIS
     Dosage: UNK
     Dates: start: 20100526, end: 20100601
  12. THYMOGLOBULIN [Suspect]
     Indication: APLASTIC ANAEMIA
     Dosage: 250 MG, QD
     Route: 042
     Dates: start: 20100517, end: 20100518
  13. FLUCONAZOLE [Concomitant]
     Indication: INFECTION PROPHYLAXIS
     Dosage: UNK
     Dates: start: 20100515
  14. METENOLONE ACETATE [Concomitant]
     Indication: APLASTIC ANAEMIA
     Dosage: UNK
     Dates: start: 20100903
  15. BIFIDOBACTERIUM [Concomitant]
     Indication: DIARRHOEA
  16. ALFACALCIDOL [Concomitant]
     Indication: OSTEOPOROSIS PROPHYLAXIS
     Dosage: UNK
     Dates: start: 20100604, end: 20100611
  17. SULFAMETHOXAZOLE AND TRIMETHOPRIM [Concomitant]
     Indication: INFECTION PROPHYLAXIS
     Dosage: UNK
     Dates: start: 20100524
  18. CEFTAZIDIME [Concomitant]
     Indication: INFECTION PROPHYLAXIS
     Dosage: UNK
     Dates: start: 20100518, end: 20100524

REACTIONS (5)
  - PYREXIA [None]
  - SERUM SICKNESS [None]
  - ALTERED STATE OF CONSCIOUSNESS [None]
  - NEUTROPENIA [None]
  - OXYGEN SATURATION DECREASED [None]
